FAERS Safety Report 9593090 (Version 1)
Quarter: 2013Q3

REPORT INFORMATION
  Report Type: Spontaneous
  Country: US (occurrence: None)
  Receive Date: 20130930
  Receipt Date: 20130930
  Transmission Date: 20140515
  Serious: Yes (Other)
  Sender: FDA-Public Use
  Company Number: 1000047786

PATIENT
  Age: 71 Year
  Sex: Female

DRUGS (11)
  1. LINZESS (LINACLOTIDE) (290 MICROGRAM, CAPSULES) [Suspect]
     Indication: CONSTIPATION
     Dosage: 290MCG, 1 IN 1 D
     Route: 048
     Dates: start: 201302
  2. GABAPENTIN [Concomitant]
  3. SERTRALINE [Concomitant]
  4. TRILEPTAL [Concomitant]
  5. ELMIRON [Concomitant]
  6. BIPOLAR MEDICATIONS NOS [Concomitant]
  7. HYDROCHLOROTHIAZIDE [Concomitant]
  8. LEVOTHYROXINE [Concomitant]
  9. DEXILANT [Concomitant]
  10. EVISTA [Concomitant]
  11. LORAZEPAM [Concomitant]

REACTIONS (2)
  - Medication error [None]
  - Somnolence [None]
